FAERS Safety Report 4739479-4 (Version None)
Quarter: 2005Q3

REPORT INFORMATION
  Report Type: 
  Country: None (occurrence: None)
  Receive Date: 20050810
  Receipt Date: 20050328
  Transmission Date: 20060218
  Serious: No
  Sender: FDA-Public Use
  Company Number: US-GLAXOSMITHKLINE-A0551498A

PATIENT
  Age: 43 Year
  Sex: Female

DRUGS (2)
  1. PAXIL [Suspect]
     Indication: DEPRESSION
     Dosage: 12.5MG PER DAY
     Route: 048
     Dates: start: 19980101
  2. BENICAR [Concomitant]

REACTIONS (3)
  - DRUG ADMINISTRATION ERROR [None]
  - FEELING ABNORMAL [None]
  - SEDATION [None]
